FAERS Safety Report 8615998-5 (Version None)
Quarter: 2012Q3

REPORT INFORMATION
  Report Type: 
  Country: None (occurrence: None)
  Receive Date: 20120823
  Receipt Date: 20120816
  Transmission Date: 20120928
  Serious: Yes (Hospitalization, Other)
  Sender: FDA-Public Use
  Company Number: AR-ROCHE-1102832

PATIENT
  Age: 84 Year
  Sex: Male

DRUGS (4)
  1. LUCENTIS [Suspect]
     Indication: AGE-RELATED MACULAR DEGENERATION
     Route: 050
     Dates: start: 20120804
  2. LOSARTAN POTASSIUM [Concomitant]
     Indication: HYPERTENSION
  3. FLUTICASONE PROPIONATE/SALMETEROL [Concomitant]
     Indication: TOBACCO USER
  4. TRANQUINAL [Concomitant]

REACTIONS (1)
  - MYOCARDIAL INFARCTION [None]
